FAERS Safety Report 12133888 (Version 2)
Quarter: 2016Q3

REPORT INFORMATION
  Report Type: Spontaneous
  Country: VE (occurrence: VE)
  Receive Date: 20160301
  Receipt Date: 20160909
  Transmission Date: 20161109
  Serious: Yes (Other)
  Sender: FDA-Public Use
  Company Number: VE-GLAXOSMITHKLINE-VE2016GSK028682

PATIENT
  Sex: Female
  Weight: 84 kg

DRUGS (1)
  1. SERETIDE [Suspect]
     Active Substance: FLUTICASONE PROPIONATE\SALMETEROL XINAFOATE
     Indication: ASTHMA
     Dosage: 2 PUFF(S), QD
     Route: 055

REACTIONS (8)
  - Therapy cessation [Unknown]
  - Dyspnoea [Unknown]
  - Haemoptysis [Unknown]
  - Product availability issue [Unknown]
  - Cough [Unknown]
  - Chest discomfort [Unknown]
  - Asthmatic crisis [Unknown]
  - Insomnia [Unknown]
